FAERS Safety Report 12763682 (Version 3)
Quarter: 2016Q4

REPORT INFORMATION
  Report Type: Spontaneous
  Country: US (occurrence: US)
  Receive Date: 20160920
  Receipt Date: 20161006
  Transmission Date: 20170207
  Serious: Yes (Hospitalization, Other)
  Sender: FDA-Public Use
  Company Number: US-PFIZER INC-2016422687

PATIENT
  Age: 41 Year
  Sex: Male

DRUGS (2)
  1. FLUCONAZOLE. [Suspect]
     Active Substance: FLUCONAZOLE
     Dosage: UNK
  2. FLUCONAZOLE. [Suspect]
     Active Substance: FLUCONAZOLE
     Dosage: 400 MG, 2X/DAY

REACTIONS (7)
  - Pyrexia [Unknown]
  - Rash maculo-papular [Recovering/Resolving]
  - Vomiting [Unknown]
  - Acute kidney injury [Recovering/Resolving]
  - Nausea [Unknown]
  - Abdominal pain [Unknown]
  - Eosinophilia [Unknown]
